FAERS Safety Report 25603554 (Version 1)
Quarter: 2025Q3

REPORT INFORMATION
  Report Type: Spontaneous
  Country: US (occurrence: US)
  Receive Date: 20250725
  Receipt Date: 20250725
  Transmission Date: 20251021
  Serious: No
  Sender: BEIGENE
  Company Number: US-BEIGENE-BGN-2025-011646

PATIENT

DRUGS (2)
  1. BRUKINSA [Suspect]
     Active Substance: ZANUBRUTINIB
     Indication: Product used for unknown indication
  2. AMARYL [Suspect]
     Active Substance: GLIMEPIRIDE

REACTIONS (2)
  - Glomerular filtration rate decreased [Unknown]
  - Peripheral swelling [Unknown]
